FAERS Safety Report 6358306-5 (Version None)
Quarter: 2009Q3

REPORT INFORMATION
  Report Type: 
  Country: None (occurrence: None)
  Receive Date: 20090916
  Receipt Date: 20090908
  Transmission Date: 20100115
  Serious: Yes (Other)
  Sender: FDA-Public Use
  Company Number: PHHO2009SE11299

PATIENT
  Sex: Male

DRUGS (1)
  1. RAD 666 RAD++PTR [Suspect]
     Indication: HEART TRANSPLANT
     Dosage: 0.75 BID/DAILY
     Route: 048
     Dates: start: 20080123

REACTIONS (1)
  - PROSTATE CANCER [None]
